FAERS Safety Report 5120748-3 (Version None)
Quarter: 2006Q4

REPORT INFORMATION
  Report Type: 
  Country: None (occurrence: None)
  Receive Date: 20061003
  Receipt Date: 20061003
  Transmission Date: 20070319
  Serious: Yes (Other)
  Sender: FDA-Public Use
  Company Number: None

PATIENT
  Sex: Male
  Weight: 84.369 kg

DRUGS (1)
  1. AREDIA [Suspect]
     Indication: METASTASES TO BONE
     Dosage: 45 MG Q4 WEEKS IV
     Route: 042
     Dates: start: 20040101, end: 20060101

REACTIONS (3)
  - EAR PAIN [None]
  - NECK PAIN [None]
  - PAIN IN JAW [None]
